FAERS Safety Report 18275273 (Version 1)
Quarter: 2020Q3

REPORT INFORMATION
  Report Type: Spontaneous
  Country: BE (occurrence: BE)
  Receive Date: 20200917
  Receipt Date: 20200917
  Transmission Date: 20201103
  Serious: Yes (Hospitalization)
  Sender: FDA-Public Use
  Company Number: BE-ABBVIE-20K-013-3569747-00

PATIENT
  Sex: Female

DRUGS (3)
  1. CORTISON [Concomitant]
     Active Substance: CORTISONE ACETATE
     Indication: PRODUCT USED FOR UNKNOWN INDICATION
  2. STELARA [Suspect]
     Active Substance: USTEKINUMAB
     Indication: PRODUCT USED FOR UNKNOWN INDICATION
     Route: 065
  3. HUMIRA [Suspect]
     Active Substance: ADALIMUMAB
     Indication: PSORIASIS
     Route: 058

REACTIONS (2)
  - Lung disorder [Unknown]
  - Pleurisy [Unknown]
